FAERS Safety Report 6896519-4 (Version None)
Quarter: 2010Q3

REPORT INFORMATION
  Report Type: 
  Country: None (occurrence: None)
  Receive Date: 20100802
  Receipt Date: 20090310
  Transmission Date: 20110219
  Serious: No
  Sender: FDA-Public Use
  Company Number: US-PFIZER INC-2009181502

PATIENT
  Sex: Female
  Weight: 54.431 kg

DRUGS (4)
  1. AMLODIPINE BESYLATE [Suspect]
     Indication: HYPERTENSION
     Dosage: 2.5 MG, 1X/DAY
     Route: 048
     Dates: start: 20040301
  2. LISINOPRIL [Concomitant]
     Indication: HYPERTENSION
     Dosage: UNK
  3. SEREVENT [Concomitant]
     Indication: ASTHMA
     Dosage: UNK
  4. QVAR 40 [Concomitant]
     Indication: ASTHMA
     Dosage: UNK

REACTIONS (1)
  - DIZZINESS [None]
